FAERS Safety Report 5636302-0 (Version None)
Quarter: 2008Q1

REPORT INFORMATION
  Report Type: 
  Country: None (occurrence: None)
  Receive Date: 20080220
  Receipt Date: 20080220
  Transmission Date: 20080703
  Serious: Yes (Other)
  Sender: FDA-Public Use
  Company Number: None

PATIENT
  Sex: Female
  Weight: 65.7716 kg

DRUGS (1)
  1. VANCOMYCIN [Suspect]
     Indication: CELLULITIS
     Dosage: 1 GRAM EVERY 12HR IV
     Route: 042
     Dates: start: 20080207, end: 20080215

REACTIONS (4)
  - ERYTHEMA [None]
  - PYREXIA [None]
  - RASH [None]
  - URTICARIA [None]
